FAERS Safety Report 5976746-0 (Version None)
Quarter: 2008Q4

REPORT INFORMATION
  Report Type: 
  Country: None (occurrence: None)
  Receive Date: 20081201
  Receipt Date: 20081201
  Transmission Date: 20090506
  Serious: Yes (Disabling)
  Sender: FDA-Public Use
  Company Number: None

PATIENT
  Sex: Male
  Weight: 104.3273 kg

DRUGS (1)
  1. ROBINUL [Suspect]
     Dosage: IV
     Route: 042
     Dates: start: 20081003

REACTIONS (4)
  - ANURIA [None]
  - ANXIETY [None]
  - BLADDER DISORDER [None]
  - PAIN [None]
